FAERS Safety Report 4939438-2 (Version None)
Quarter: 2006Q1

REPORT INFORMATION
  Report Type: 
  Country: None (occurrence: None)
  Receive Date: 20060310
  Receipt Date: 20060228
  Transmission Date: 20060701
  Serious: Yes (Hospitalization)
  Sender: FDA-Public Use
  Company Number: FR-BRISTOL-MYERS SQUIBB COMPANY-13302740

PATIENT
  Age: 7 Decade
  Sex: Female

DRUGS (1)
  1. GLUCOVANCE [Suspect]
     Dosage: DOSAGE FORM = 5 MG/500 MG
     Route: 048

REACTIONS (1)
  - HYPOGLYCAEMIC COMA [None]
